FAERS Safety Report 4771254-7 (Version None)
Quarter: 2005Q3

REPORT INFORMATION
  Report Type: 
  Country: None (occurrence: None)
  Receive Date: 20050914
  Receipt Date: 20050830
  Transmission Date: 20060218
  Serious: Yes (Hospitalization)
  Sender: FDA-Public Use
  Company Number: 2005BI013822

PATIENT
  Age: 64 Year
  Sex: Female

DRUGS (7)
  1. AVONEX [Suspect]
     Indication: MULTIPLE SCLEROSIS
     Dosage: 30 UG;QW;IM
     Route: 030
     Dates: start: 19970601
  2. ASPIRIN [Concomitant]
  3. ATIVAN [Concomitant]
  4. BACLOFEN [Concomitant]
  5. BUTALBITAL [Concomitant]
  6. COLACE [Concomitant]
  7. DELTASONE [Concomitant]

REACTIONS (2)
  - GAIT DISTURBANCE [None]
  - OSTEOARTHRITIS [None]
